FAERS Safety Report 9155288 (Version 1)
Quarter: 2013Q1

REPORT INFORMATION
  Report Type: Spontaneous
  Country: FR (occurrence: FR)
  Receive Date: 20130311
  Receipt Date: 20130311
  Transmission Date: 20140127
  Serious: Yes (Hospitalization)
  Sender: FDA-Public Use
  Company Number: FR-TEVA-389279ISR

PATIENT
  Age: 59 Year
  Sex: Male

DRUGS (7)
  1. OXALIPLATINE [Suspect]
     Indication: COLON CANCER
     Dosage: 227.5 MILLIGRAM DAILY;
     Route: 042
     Dates: start: 20130206, end: 20130206
  2. XELODA [Suspect]
     Indication: COLON CANCER
     Dosage: 1500 MILLIGRAM DAILY;
     Route: 048
     Dates: start: 20130206, end: 20130206
  3. DAFALGAN [Concomitant]
     Route: 048
  4. LYRICA [Concomitant]
     Route: 048
  5. EUPANTOL [Concomitant]
     Route: 048
  6. TOPALGIC [Concomitant]
     Route: 048
  7. ZOLPIDEM [Concomitant]

REACTIONS (7)
  - Malaise [Recovered/Resolved]
  - Hypoaesthesia [Recovering/Resolving]
  - Paraesthesia [Recovering/Resolving]
  - Tremor [Unknown]
  - Nausea [Unknown]
  - Abdominal pain [Unknown]
  - Constipation [Unknown]
